FAERS Safety Report 16291320 (Version 1)
Quarter: 2019Q2

REPORT INFORMATION
  Report Type: Spontaneous
  Country: DE (occurrence: DE)
  Receive Date: 20190509
  Receipt Date: 20190509
  Transmission Date: 20190711
  Serious: Yes (Hospitalization)
  Sender: FDA-Public Use
  Company Number: DE-TEVA-2019-DE-1047242

PATIENT
  Age: 48 Year
  Sex: Female

DRUGS (14)
  1. IRINOTECAN [Suspect]
     Active Substance: IRINOTECAN
     Dosage: EIGHT NEW CYCLES; ON DAYS 1, 8 AND 15 (CYCLES IV TO VIII WITH 60% OF THE DOSE)
     Route: 065
  2. IRINOTECAN [Suspect]
     Active Substance: IRINOTECAN
     Dosage: FOUR ADDITIONAL CYCLES; ON DAYS 1, 8 AND 15, EVERY 4 WEEKS
     Route: 065
  3. APREPITANT. [Concomitant]
     Active Substance: APREPITANT
     Dosage: 80 MILLIGRAM DAILY; DAY 2-5
     Route: 065
  4. PANTOPRAZOLE [Concomitant]
     Active Substance: PANTOPRAZOLE
     Dosage: 40 MILLIGRAM DAILY;
     Route: 065
  5. CISPLATIN. [Suspect]
     Active Substance: CISPLATIN
     Dosage: EIGHT NEW CYCLES; ON DAY 1-3 (CYCLES IV TO VIII WITH 60% OF THE DOSE)
     Route: 065
  6. SODIUM PICOSULFATE [Concomitant]
     Active Substance: SODIUM PICOSULFATE
     Indication: CONSTIPATION PROPHYLAXIS
     Route: 065
  7. APREPITANT. [Concomitant]
     Active Substance: APREPITANT
     Indication: PROPHYLAXIS OF NAUSEA AND VOMITING
     Dosage: 125 MILLIGRAM DAILY; DAY1
     Route: 065
  8. IRINOTECAN [Suspect]
     Active Substance: IRINOTECAN
     Indication: MIXED ADENONEUROENDOCRINE CARCINOMA
     Dosage: ON DAYS 1, 8 AND 15, EVERY 4 WEEKS
     Route: 065
  9. DEXAMETHASONE. [Concomitant]
     Active Substance: DEXAMETHASONE
     Dosage: 12 MILLIGRAM DAILY; DAY 1
     Route: 065
  10. CISPLATIN. [Suspect]
     Active Substance: CISPLATIN
     Indication: MIXED ADENONEUROENDOCRINE CARCINOMA
     Dosage: ON DAYS1-5
     Route: 065
  11. CISPLATIN. [Suspect]
     Active Substance: CISPLATIN
     Dosage: FOUR ADDITIONAL CYCLES; ON DAYS 1-4
     Route: 065
  12. ONDANSETRON [Concomitant]
     Active Substance: ONDANSETRON
     Indication: PROPHYLAXIS OF NAUSEA AND VOMITING
     Dosage: 16 MILLIGRAM DAILY;
     Route: 065
  13. DEXAMETHASONE. [Concomitant]
     Active Substance: DEXAMETHASONE
     Dosage: 8 MILLIGRAM DAILY; DAY 2-5
     Route: 065
  14. ENOXAPARIN SODIUM. [Concomitant]
     Active Substance: ENOXAPARIN SODIUM
     Dosage: 40 MILLIGRAM DAILY;
     Route: 065

REACTIONS (9)
  - Dehydration [Recovered/Resolved]
  - Leukopenia [Recovered/Resolved]
  - Staphylococcal sepsis [Recovered/Resolved]
  - Escherichia urinary tract infection [Recovered/Resolved]
  - Anaemia [Recovered/Resolved]
  - Fatigue [Recovered/Resolved]
  - Diarrhoea [Recovered/Resolved]
  - Staphylococcal infection [Recovered/Resolved]
  - Proctalgia [Recovered/Resolved]
